FAERS Safety Report 23774029 (Version 1)
Quarter: 2024Q2

REPORT INFORMATION
  Report Type: Report from Study
  Country: DE (occurrence: DE)
  Receive Date: 20240423
  Receipt Date: 20240423
  Transmission Date: 20240716
  Serious: Yes (Hospitalization)
  Sender: FDA-Public Use
  Company Number: DE-Eisai Medical Research-EC-2023-137795

PATIENT
  Age: 69 Year
  Sex: Male
  Weight: 95 kg

DRUGS (4)
  1. LENVATINIB [Suspect]
     Active Substance: LENVATINIB
     Indication: Hepatocellular carcinoma
     Dosage: DOSE, ROUTE, AND FREQUENCY: UNKNOWN
     Route: 048
     Dates: start: 20230310, end: 20230330
  2. LENVATINIB [Suspect]
     Active Substance: LENVATINIB
     Dosage: DOSE, ROUTE, AND FREQUENCY: UNKNOWN
     Route: 048
     Dates: start: 202304, end: 20230505
  3. PEMBROLIZUMAB [Suspect]
     Active Substance: PEMBROLIZUMAB
     Indication: Hepatocellular carcinoma
     Dosage: DOSE, ROUTE, AND FREQUENCY: UNKNOWN.
     Route: 042
     Dates: start: 20230310, end: 20230310
  4. PEMBROLIZUMAB [Suspect]
     Active Substance: PEMBROLIZUMAB
     Dosage: DOSE, ROUTE, AND FREQUENCY: UNKNOWN.
     Route: 042
     Dates: start: 202304, end: 20230421

REACTIONS (3)
  - Cholangitis [Recovered/Resolved]
  - Embolism [Recovering/Resolving]
  - Ascites [Recovered/Resolved]

NARRATIVE: CASE EVENT DATE: 20230331
